FAERS Safety Report 18770219 (Version 2)
Quarter: 2021Q2

REPORT INFORMATION
  Report Type: Spontaneous
  Country: US (occurrence: US)
  Receive Date: 20210121
  Receipt Date: 20210421
  Transmission Date: 20210717
  Serious: No
  Sender: FDA-Public Use
  Company Number: US-ZOGENIX INTERNATIONAL LIMITED, A WHOLLY OWNED SUBSIDIARY OF ZOGENIX, INC.-2020ZX000078

PATIENT
  Age: 3 Year
  Sex: Male

DRUGS (10)
  1. FINTEPLA [Suspect]
     Active Substance: FENFLURAMINE
     Indication: SEVERE MYOCLONIC EPILEPSY OF INFANCY
     Dosage: TITRATION TO 2.0 ML/DAY
     Route: 048
     Dates: start: 20200828, end: 20200924
  2. DEPAKOTE [Concomitant]
     Active Substance: DIVALPROEX SODIUM
     Indication: SEIZURE
     Route: 048
  3. VALIUM [Concomitant]
     Active Substance: DIAZEPAM
     Indication: SEIZURE
     Route: 048
  4. KLONOPIN [Concomitant]
     Active Substance: CLONAZEPAM
     Indication: SEIZURE
     Route: 048
  5. FINTEPLA [Suspect]
     Active Substance: FENFLURAMINE
     Route: 048
  6. FINTEPLA [Suspect]
     Active Substance: FENFLURAMINE
     Dosage: 1.5 ML EVERY MORNING?2.0 ML EVERY EVENING
     Route: 048
     Dates: start: 20210310
  7. TOPAMAX [Concomitant]
     Active Substance: TOPIRAMATE
     Indication: SEIZURE
     Route: 048
  8. NAYZILAM [Concomitant]
     Active Substance: MIDAZOLAM
     Indication: SEIZURE
     Route: 048
  9. FINTEPLA [Suspect]
     Active Substance: FENFLURAMINE
     Route: 048
     Dates: start: 20200924, end: 202011
  10. FINTEPLA [Suspect]
     Active Substance: FENFLURAMINE
     Dosage: 1.0 ML EVERY MORNING?1.5 ML EVERY EVENING
     Route: 048
     Dates: start: 202011

REACTIONS (6)
  - Aggression [Not Recovered/Not Resolved]
  - Irritability [Recovering/Resolving]
  - Seizure [Unknown]
  - Aggression [Not Recovered/Not Resolved]
  - Depressed mood [Not Recovered/Not Resolved]
  - Abnormal behaviour [Not Recovered/Not Resolved]

NARRATIVE: CASE EVENT DATE: 20200924
